FAERS Safety Report 20779722 (Version 1)
Quarter: 2022Q2

REPORT INFORMATION
  Report Type: Spontaneous
  Country: US (occurrence: US)
  Receive Date: 20220503
  Receipt Date: 20220503
  Transmission Date: 20220721
  Serious: No
  Sender: FDA-Public Use
  Company Number: US-PFIZER INC-202200426142

PATIENT
  Age: 35 Year
  Sex: Female
  Weight: 72.57 kg

DRUGS (1)
  1. EUCRISA [Suspect]
     Active Substance: CRISABOROLE
     Indication: Eczema
     Dosage: UNK, APPLY TWICE (AS NEEDED)
     Dates: start: 20220316

REACTIONS (1)
  - Chills [Not Recovered/Not Resolved]

NARRATIVE: CASE EVENT DATE: 20220316
